FAERS Safety Report 8188893 (Version 4)
Quarter: 2014Q1

REPORT INFORMATION
  Report Type: Report from Study
  Country: US (occurrence: US)
  Receive Date: 20111019
  Receipt Date: 20140129
  Transmission Date: 20141002
  Serious: Yes (Other)
  Sender: FDA-Public Use
  Company Number: US-SANOFI-AVENTIS-2011SA067532

PATIENT
  Age: 49 Year
  Sex: Female
  Weight: 63.6 kg

DRUGS (11)
  1. DOCETAXEL [Suspect]
     Indication: BREAST CANCER
     Route: 042
     Dates: start: 20030605, end: 20030605
  2. DOCETAXEL [Suspect]
     Indication: BREAST CANCER
     Route: 042
     Dates: start: 20030806, end: 20030806
  3. DOXORUBICIN [Suspect]
     Indication: BREAST CANCER
     Route: 042
     Dates: start: 20030312, end: 20030312
  4. DOXORUBICIN [Suspect]
     Indication: BREAST CANCER
     Route: 042
     Dates: start: 20030514, end: 20030514
  5. CYCLOPHOSPHAMIDE [Suspect]
     Indication: BREAST CANCER
     Route: 042
     Dates: start: 20030312, end: 20030312
  6. CYCLOPHOSPHAMIDE [Suspect]
     Indication: BREAST CANCER
     Route: 042
     Dates: start: 20030514, end: 20030514
  7. TRASTUZUMAB [Suspect]
     Indication: BREAST CANCER
     Route: 042
     Dates: start: 20030605, end: 20030605
  8. TRASTUZUMAB [Suspect]
     Indication: BREAST CANCER
     Route: 042
     Dates: start: 20030821, end: 20030821
  9. MULTIVITAMINS [Concomitant]
     Route: 048
     Dates: start: 2003
  10. POTASSIUM [Concomitant]
     Route: 048
  11. MAGNESIUM [Concomitant]
     Route: 048
     Dates: start: 20070302

REACTIONS (1)
  - Chronic myeloid leukaemia [Not Recovered/Not Resolved]
